FAERS Safety Report 19534162 (Version 1)
Quarter: 2021Q3

REPORT INFORMATION
  Report Type: Spontaneous
  Country: US (occurrence: US)
  Receive Date: 20210713
  Receipt Date: 20210713
  Transmission Date: 20211014
  Serious: Yes (Other)
  Sender: FDA-Public Use
  Company Number: US-BAYER-2021-169536

PATIENT
  Sex: Female

DRUGS (2)
  1. LYRICA [Concomitant]
     Active Substance: PREGABALIN
  2. ASPIRIN (PAIN AND FEVER) [Suspect]
     Active Substance: ASPIRIN
     Indication: CORONARY ARTERY DISEASE
     Dosage: UNK

REACTIONS (8)
  - Blood pressure increased [Unknown]
  - Headache [None]
  - Cardiovascular disorder [Unknown]
  - Cerebral disorder [None]
  - Mental impairment [None]
  - Back pain [None]
  - Eye haemorrhage [None]
  - Visual impairment [None]
